FAERS Safety Report 12349349 (Version 4)
Quarter: 2016Q3

REPORT INFORMATION
  Report Type: Report from Study
  Country: BR (occurrence: BR)
  Receive Date: 20160509
  Receipt Date: 20160915
  Transmission Date: 20161109
  Serious: Yes (Hospitalization)
  Sender: FDA-Public Use
  Company Number: PHHY2016BR063225

PATIENT
  Age: 98 Year
  Sex: Female

DRUGS (8)
  1. REMERON [Concomitant]
     Active Substance: MIRTAZAPINE
     Indication: PRODUCT USED FOR UNKNOWN INDICATION
     Dosage: 1 DF, QD
     Route: 048
  2. NEUTROFER [Concomitant]
     Active Substance: FERROUS BISGLYCINATE
     Indication: ANAEMIA
     Dosage: 1 DF, QD
     Route: 048
  3. EXELON PATCH [Suspect]
     Active Substance: RIVASTIGMINE
     Dosage: 9.5 MG QD, PATCH 10 (CM2)
     Route: 062
     Dates: start: 201606
  4. DEPAKOTE [Concomitant]
     Active Substance: DIVALPROEX SODIUM
     Indication: CONFUSIONAL STATE
     Dosage: 1 DF, QD
     Route: 048
  5. EBIX [Concomitant]
     Active Substance: MEMANTINE HYDROCHLORIDE
     Indication: DEMENTIA ALZHEIMER^S TYPE
     Dosage: 2 DF, QD
     Route: 048
  6. ADDERA D3 [Concomitant]
     Active Substance: CHOLECALCIFEROL
     Indication: VITAMIN D DEFICIENCY
     Dosage: 1 DF (MONDAY, WEDNESDAY AND FRIDAY)
     Route: 048
  7. LYRICA [Concomitant]
     Active Substance: PREGABALIN
     Indication: STEREOTYPY
     Dosage: 1 DF, QD
     Route: 048
  8. EXELON PATCH [Suspect]
     Active Substance: RIVASTIGMINE
     Indication: DEMENTIA ALZHEIMER^S TYPE
     Dosage: 4.6 MG QD, PATCH 5 (CM2)
     Route: 062
     Dates: start: 20160416

REACTIONS (15)
  - Oxygen consumption decreased [Unknown]
  - Somnolence [Not Recovered/Not Resolved]
  - Urinary tract infection [Recovering/Resolving]
  - Application site pruritus [Recovered/Resolved]
  - Inflammation [Not Recovered/Not Resolved]
  - Pyrexia [Recovering/Resolving]
  - Mood altered [Unknown]
  - Dysstasia [Not Recovered/Not Resolved]
  - Hypotension [Recovering/Resolving]
  - Lack of application site rotation [Recovered/Resolved]
  - Application site irritation [Recovered/Resolved]
  - Peripheral swelling [Not Recovered/Not Resolved]
  - Hypertension [Recovering/Resolving]
  - Application site erythema [Recovered/Resolved]
  - Application site rash [Recovered/Resolved]

NARRATIVE: CASE EVENT DATE: 20160420
